FAERS Safety Report 23926018 (Version 1)
Quarter: 2024Q2

REPORT INFORMATION
  Report Type: Spontaneous
  Country: DE (occurrence: DE)
  Receive Date: 20240531
  Receipt Date: 20240531
  Transmission Date: 20240716
  Serious: Yes (Hospitalization)
  Sender: FDA-Public Use
  Company Number: DE-DCGMA-24203287

PATIENT
  Age: 52 Year
  Sex: Male
  Weight: 83 kg

DRUGS (3)
  1. PIPERACILLIN SODIUM\TAZOBACTAM SODIUM [Suspect]
     Active Substance: PIPERACILLIN SODIUM\TAZOBACTAM SODIUM
     Indication: Splenectomy
     Dosage: 1-1-1?FORM OF ADMIN: UNKNOWN
     Route: 042
     Dates: start: 20240115, end: 20240119
  2. PENICILLIN V [Concomitant]
     Active Substance: PENICILLIN V
     Indication: Product used for unknown indication
     Route: 048
     Dates: start: 20240125, end: 20240128
  3. AMOXICILLIN [Concomitant]
     Active Substance: AMOXICILLIN
     Indication: Product used for unknown indication
     Dosage: 1G 1-1-1
     Route: 048
     Dates: start: 20240120, end: 20240125

REACTIONS (9)
  - Ammonia increased [Recovering/Resolving]
  - Transaminases increased [Recovering/Resolving]
  - Coagulopathy [Recovering/Resolving]
  - Acute hepatic failure [Recovering/Resolving]
  - Hypofibrinogenaemia [Recovering/Resolving]
  - Hyperbilirubinaemia [Recovering/Resolving]
  - Hypoalbuminaemia [Recovering/Resolving]
  - Blood cholinesterase decreased [Recovering/Resolving]
  - Drug-induced liver injury [Recovering/Resolving]

NARRATIVE: CASE EVENT DATE: 20240118
